FAERS Safety Report 9121421 (Version 2)
Quarter: 2013Q1

REPORT INFORMATION
  Report Type: Spontaneous
  Country: US (occurrence: US)
  Receive Date: 20130225
  Receipt Date: 20130308
  Transmission Date: 20140127
  Serious: No
  Sender: FDA-Public Use
  Company Number: US-PFIZER INC-2013066632

PATIENT
  Sex: Female

DRUGS (5)
  1. GABAPENTIN [Suspect]
     Indication: HERPES ZOSTER
     Dosage: UNK
  2. TRAMADOL HCL [Suspect]
     Indication: HERPES ZOSTER
     Dosage: UNK
  3. OXYCODONE HYDROCHLORIDE [Suspect]
     Indication: HERPES ZOSTER
     Dosage: UNK
  4. VICODIN [Suspect]
     Indication: HERPES ZOSTER
     Dosage: UNK
  5. HYDROMORPHONE [Suspect]
     Indication: HERPES ZOSTER
     Dosage: UNK

REACTIONS (1)
  - Dysphagia [Unknown]
